FAERS Safety Report 17467935 (Version 2)
Quarter: 2020Q4

REPORT INFORMATION
  Report Type: Spontaneous
  Country: US (occurrence: US)
  Receive Date: 20200227
  Receipt Date: 20201123
  Transmission Date: 20210113
  Serious: No
  Sender: FDA-Public Use
  Company Number: US-PFIZER INC-2020086469

PATIENT
  Age: 74 Year
  Sex: Female
  Weight: 88.44 kg

DRUGS (1)
  1. SKELAXIN [Suspect]
     Active Substance: METAXALONE
     Indication: BACK PAIN
     Dosage: 80 MG, 3X/DAY

REACTIONS (1)
  - Drug ineffective [Unknown]
